FAERS Safety Report 8197983-3 (Version None)
Quarter: 2012Q1

REPORT INFORMATION
  Report Type: 
  Country: None (occurrence: None)
  Receive Date: 20120309
  Receipt Date: 20111130
  Transmission Date: 20120608
  Serious: No
  Sender: FDA-Public Use
  Company Number: US-AMGEN-USASP2011063536

PATIENT
  Sex: Male

DRUGS (8)
  1. CASODEX [Concomitant]
  2. XGEVA [Suspect]
     Indication: PROSTATE CANCER METASTATIC
     Dosage: 120 MG, QMO
     Dates: start: 20111101
  3. FIRMAGON [Concomitant]
  4. AVAPRO [Concomitant]
  5. COREG [Concomitant]
  6. LASIX [Concomitant]
  7. POTASSIUM [Concomitant]
  8. COUMADIN [Concomitant]

REACTIONS (1)
  - URINARY SEDIMENT PRESENT [None]
